FAERS Safety Report 4349944-X (Version None)
Quarter: 2004Q2

REPORT INFORMATION
  Report Type: 
  Country: None (occurrence: None)
  Receive Date: 20040428
  Receipt Date: 20040428
  Transmission Date: 20050107
  Serious: Yes (Hospitalization)
  Sender: FDA-Public Use
  Company Number: None

PATIENT
  Sex: Female
  Weight: 56.6996 kg

DRUGS (1)
  1. FLUOXETINE [Suspect]
     Indication: DEPRESSION
     Dosage: ONE CAPSUL IN MORNING

REACTIONS (6)
  - ABNORMAL BEHAVIOUR [None]
  - DELUSION [None]
  - DISTURBANCE IN ATTENTION [None]
  - INSOMNIA [None]
  - MANIA [None]
  - MOOD ALTERED [None]
